FAERS Safety Report 8470546-8 (Version None)
Quarter: 2012Q2

REPORT INFORMATION
  Report Type: 
  Country: None (occurrence: None)
  Receive Date: 20120627
  Receipt Date: 20120619
  Transmission Date: 20120825
  Serious: Yes (Other)
  Sender: FDA-Public Use
  Company Number: PHHY2012BR045552

PATIENT
  Sex: Female
  Weight: 14 kg

DRUGS (1)
  1. FORMOTEROL FUMARATE [Suspect]
     Dosage: 1 DF, ONCE/SINGLE
     Route: 048

REACTIONS (2)
  - EYE SWELLING [None]
  - ACCIDENTAL DRUG INTAKE BY CHILD [None]
